FAERS Safety Report 24466222 (Version 1)
Quarter: 2024Q4

REPORT INFORMATION
  Report Type: Spontaneous
  Country: US (occurrence: US)
  Receive Date: 20241018
  Receipt Date: 20241018
  Transmission Date: 20250115
  Serious: No
  Sender: ROCHE
  Company Number: US-ROCHE-3534825

PATIENT
  Age: 31 Year
  Sex: Male

DRUGS (2)
  1. XOLAIR [Suspect]
     Active Substance: OMALIZUMAB
     Indication: Asthma
     Route: 058
     Dates: start: 20240327
  2. XOLAIR [Suspect]
     Active Substance: OMALIZUMAB

REACTIONS (4)
  - Accidental exposure to product [Unknown]
  - Product complaint [Unknown]
  - Wrong technique in device usage process [Unknown]
  - No adverse event [Unknown]

NARRATIVE: CASE EVENT DATE: 20240327
